FAERS Safety Report 20619746 (Version 1)
Quarter: 2022Q1

REPORT INFORMATION
  Report Type: Spontaneous
  Country: US (occurrence: US)
  Receive Date: 20220322
  Receipt Date: 20220322
  Transmission Date: 20220424
  Serious: Yes (Other)
  Sender: FDA-Public Use
  Company Number: US-CELLTRION INC.-2022US003249

PATIENT

DRUGS (6)
  1. TRUXIMA [Suspect]
     Active Substance: RITUXIMAB-ABBS
     Indication: Marginal zone lymphoma
     Dosage: 100 MG FOR 2 DAYS Q 28 DS
     Dates: start: 20211122
  2. TRUXIMA [Suspect]
     Active Substance: RITUXIMAB-ABBS
     Dosage: 100 MG FOR 2 DAYS Q 28 DS.
     Dates: start: 20211123
  3. TRUXIMA [Suspect]
     Active Substance: RITUXIMAB-ABBS
     Dosage: 100 MG FOR 2 DAYS Q 28 DS.
     Dates: start: 20220103
  4. TRUXIMA [Suspect]
     Active Substance: RITUXIMAB-ABBS
     Dosage: 100 MG FOR 2 DAYS Q 28 DS.
     Dates: start: 20220104
  5. TRUXIMA [Suspect]
     Active Substance: RITUXIMAB-ABBS
     Dosage: 100 MG FOR 2 DAYS Q 28 DS.
  6. TRUXIMA [Suspect]
     Active Substance: RITUXIMAB-ABBS
     Dosage: 100 MG FOR 2 DAYS Q 28 DS.

REACTIONS (2)
  - Marginal zone lymphoma [Unknown]
  - Off label use [Unknown]
